FAERS Safety Report 17277574 (Version 2)
Quarter: 2020Q3

REPORT INFORMATION
  Report Type: Report from Study
  Country: KR (occurrence: KR)
  Receive Date: 20200116
  Receipt Date: 20200716
  Transmission Date: 20201102
  Serious: Yes (Hospitalization)
  Sender: FDA-Public Use
  Company Number: KR-ACTELION-A-CH2020-200522

PATIENT
  Age: 42 Year
  Sex: Female

DRUGS (4)
  1. MACITENTAN [Suspect]
     Active Substance: MACITENTAN
     Indication: PULMONARY ARTERIAL HYPERTENSION
     Dosage: 10 MG, QD
     Route: 048
  2. UPTRAVI [Concomitant]
     Active Substance: SELEXIPAG
     Dosage: UNK
     Route: 048
     Dates: start: 20200120
  3. UPTRAVI [Concomitant]
     Active Substance: SELEXIPAG
     Dosage: 600 MCG, BID
     Route: 048
     Dates: start: 20200120
  4. OXYGEN. [Suspect]
     Active Substance: OXYGEN
     Indication: OXYGEN SATURATION DECREASED
     Route: 065

REACTIONS (5)
  - Pneumonia [Recovered/Resolved]
  - Body temperature increased [Recovered/Resolved]
  - Hypercapnia [Recovered/Resolved]
  - Oxygen saturation decreased [Recovered/Resolved]
  - Syncope [Recovered/Resolved]

NARRATIVE: CASE EVENT DATE: 20191229
